FAERS Safety Report 9497912 (Version 1)
Quarter: 2013Q3

REPORT INFORMATION
  Report Type: Spontaneous
  Country: DE (occurrence: None)
  Receive Date: 20130830
  Receipt Date: 20130830
  Transmission Date: 20140515
  Serious: Yes (Congenital Anomaly)
  Sender: FDA-Public Use
  Company Number: NSR_01231_2013

PATIENT
  Sex: 0

DRUGS (4)
  1. ALLOPURINOL [Suspect]
     Indication: GOUT
     Dosage: 300 MG, MG/D
  2. FUROSEMIDE [Concomitant]
  3. PRAVASTATIN [Concomitant]
  4. CERIVASTATIN [Concomitant]

REACTIONS (2)
  - Haemangioma [None]
  - Maternal drugs affecting foetus [None]
